FAERS Safety Report 8988226 (Version 2)
Quarter: 2013Q1

REPORT INFORMATION
  Report Type: Report from Study
  Country: AU (occurrence: AU)
  Receive Date: 20121227
  Receipt Date: 20130124
  Transmission Date: 20140127
  Serious: Yes (Other)
  Sender: FDA-Public Use
  Company Number: AU-ROCHE-1170743

PATIENT
  Age: 60 Year
  Sex: Female

DRUGS (15)
  1. TOCILIZUMAB [Suspect]
     Indication: RHEUMATOID ARTHRITIS
     Route: 042
     Dates: start: 20121217
  2. APO-DIAZEPAM [Concomitant]
     Route: 065
  3. ENDEP [Concomitant]
     Route: 065
  4. MOBIC [Concomitant]
     Route: 065
  5. NEXIUM [Concomitant]
     Route: 065
  6. PANAFCORTELONE [Concomitant]
     Route: 065
  7. PRISTIQ [Concomitant]
     Route: 065
  8. TARGIN [Concomitant]
     Dosage: 20/10 MG
     Route: 065
  9. TARGIN [Concomitant]
     Dosage: 10/5 MG
     Route: 065
  10. APO-LEFLUNOMIDE [Concomitant]
     Route: 065
  11. METHOTREXATE [Concomitant]
     Route: 065
  12. FOLIC ACID [Concomitant]
  13. PANADEINE FORTE [Concomitant]
  14. FRUSEMIDE [Concomitant]
     Route: 065
  15. VITAMIN B12 [Concomitant]
     Route: 065

REACTIONS (9)
  - Vision blurred [Recovering/Resolving]
  - Oral pain [Unknown]
  - Gingival pain [Unknown]
  - Arthralgia [Not Recovered/Not Resolved]
  - Back pain [Not Recovered/Not Resolved]
  - Pain in extremity [Not Recovered/Not Resolved]
  - Fatigue [Unknown]
  - Poor quality sleep [Unknown]
  - Lip dry [Unknown]
